FAERS Safety Report 14941506 (Version 2)
Quarter: 2018Q2

REPORT INFORMATION
  Report Type: Spontaneous
  Country: US (occurrence: US)
  Receive Date: 20180526
  Receipt Date: 20180620
  Transmission Date: 20180711
  Serious: Yes (Other)
  Sender: FDA-Public Use
  Company Number: US-TEVA-2018-US-894808

PATIENT
  Sex: Female

DRUGS (4)
  1. METHADONE [Concomitant]
     Active Substance: METHADONE HYDROCHLORIDE
     Route: 065
  2. ACTIQ [Suspect]
     Active Substance: FENTANYL CITRATE
     Indication: CANCER PAIN
     Route: 048
  3. ACTIQ [Suspect]
     Active Substance: FENTANYL CITRATE
     Route: 065
     Dates: start: 2010
  4. OXYCONTIN [Suspect]
     Active Substance: OXYCODONE HYDROCHLORIDE
     Route: 065

REACTIONS (9)
  - Muscle spasms [Unknown]
  - Loss of consciousness [Unknown]
  - Tooth loss [Unknown]
  - Alopecia [Unknown]
  - Emotional distress [Unknown]
  - Vocal cord paralysis [Unknown]
  - Fall [Unknown]
  - Drug effect decreased [Unknown]
  - Product solubility abnormal [Unknown]
